FAERS Safety Report 19388328 (Version 1)
Quarter: 2021Q2

REPORT INFORMATION
  Report Type: Spontaneous
  Country: US (occurrence: US)
  Receive Date: 20210607
  Receipt Date: 20210607
  Transmission Date: 20210717
  Serious: No
  Sender: FDA-Public Use
  Company Number: US-PERRIGO-21US003882

PATIENT
  Age: 70 Year
  Sex: Female
  Weight: 87.08 kg

DRUGS (4)
  1. ATENOLOL. [Concomitant]
     Active Substance: ATENOLOL
     Indication: HYPERTENSION
     Dosage: UNK
     Route: 065
  2. CORTISONE [Suspect]
     Active Substance: CORTISONE
     Indication: INFLAMMATION
     Dosage: UNKNOWN, UNKNOWN
     Route: 058
     Dates: start: 202011
  3. VITAMINS NOS [Concomitant]
     Active Substance: VITAMINS
     Indication: SUPPLEMENTATION THERAPY
     Dosage: UNK
     Route: 065
  4. MINOXIDIL. [Suspect]
     Active Substance: MINOXIDIL
     Indication: ALOPECIA
     Dosage: LESS THAN 1/2 CAPFUL, BID
     Route: 061
     Dates: start: 202011

REACTIONS (5)
  - Drug ineffective for unapproved indication [Unknown]
  - Product administered at inappropriate site [Not Recovered/Not Resolved]
  - Weight increased [Not Recovered/Not Resolved]
  - Underdose [Not Recovered/Not Resolved]
  - Inappropriate schedule of product administration [Not Recovered/Not Resolved]

NARRATIVE: CASE EVENT DATE: 202011
